FAERS Safety Report 6977947-5 (Version None)
Quarter: 2010Q3

REPORT INFORMATION
  Report Type: 
  Country: None (occurrence: None)
  Receive Date: 20100913
  Receipt Date: 20100903
  Transmission Date: 20110219
  Serious: Yes (Other)
  Sender: FDA-Public Use
  Company Number: DE-PFIZER INC-2010112130

PATIENT
  Age: 25 Year
  Sex: Female

DRUGS (1)
  1. DEPOCON - FERTIGSPRITZE [Suspect]
     Indication: CONTRACEPTION
     Dosage: 1 DF, SINGLE
     Route: 030
     Dates: start: 20100126, end: 20100126

REACTIONS (1)
  - INJECTION SITE ATROPHY [None]
